FAERS Safety Report 26162641 (Version 1)
Quarter: 2025Q4

REPORT INFORMATION
  Report Type: Spontaneous
  Country: US (occurrence: US)
  Receive Date: 20251216
  Receipt Date: 20251216
  Transmission Date: 20260118
  Serious: Yes (Congenital Anomaly, Other)
  Sender: ARGENX BVBA
  Company Number: US-ARGENX-2025-ARGX-US017532

PATIENT

DRUGS (5)
  1. VYVGART HYTRULO [Suspect]
     Active Substance: EFGARTIGIMOD ALFA\HYALURONIDASE-QVFC
     Indication: Exposure during pregnancy
     Dosage: 1000 MG
     Route: 064
     Dates: start: 20250714
  2. COENZYME Q10 [Concomitant]
     Active Substance: DIETARY SUPPLEMENT\UBIDECARENONE
     Indication: Exposure during pregnancy
     Route: 064
  3. VITAMINS [Concomitant]
     Active Substance: VITAMINS
     Indication: Exposure during pregnancy
     Route: 064
  4. OMEGACO3 [Concomitant]
     Indication: Exposure during pregnancy
     Route: 064
  5. PYRIDOSTIGMINE [Concomitant]
     Active Substance: PYRIDOSTIGMINE
     Indication: Exposure during pregnancy
     Dosage: 60 MG, TID
     Route: 064
     Dates: start: 20250301

REACTIONS (1)
  - Talipes [Not Recovered/Not Resolved]

NARRATIVE: CASE EVENT DATE: 20251110
